FAERS Safety Report 4747403-3 (Version None)
Quarter: 2005Q3

REPORT INFORMATION
  Report Type: 
  Country: None (occurrence: None)
  Receive Date: 20050815
  Receipt Date: 20050503
  Transmission Date: 20060218
  Serious: No
  Sender: FDA-Public Use
  Company Number: USA050597192

PATIENT
  Sex: Male

DRUGS (13)
  1. CIALIS [Suspect]
  2. ZESTRIL (LISINOPRIL) /SCH/ [Concomitant]
  3. ADVIL [Concomitant]
  4. ASPIRIN [Concomitant]
  5. ST JOHN'S WORT [Concomitant]
  6. GLUCOPHAGE XR (METFORMIN HYDROCHLORIDE) [Concomitant]
  7. ZAYTIA [Concomitant]
  8. AMARYL [Concomitant]
  9. ECOTRIN (ACETYLSALICYLIC ACID) [Concomitant]
  10. MULTI-VITAMIN [Concomitant]
  11. ACTOS [Concomitant]
  12. OTC PAIN KILLERS [Concomitant]
  13. NEXIUM [Concomitant]

REACTIONS (3)
  - BLOOD PRESSURE ABNORMAL [None]
  - JAW DISORDER [None]
  - THERAPEUTIC RESPONSE DELAYED [None]
